FAERS Safety Report 5786224-X (Version None)
Quarter: 2008Q2

REPORT INFORMATION
  Report Type: 
  Country: None (occurrence: None)
  Receive Date: 20080624
  Receipt Date: 20080612
  Transmission Date: 20081010
  Serious: Yes (Hospitalization)
  Sender: FDA-Public Use
  Company Number: JP-SANOFI-SYNTHELABO-A01200712331

PATIENT
  Age: 44 Year
  Sex: Male

DRUGS (12)
  1. ZOPICLONE [Concomitant]
     Indication: DRUG USE FOR UNKNOWN INDICATION
     Dosage: 20 MG
     Route: 065
  2. TRIAZOLAM [Concomitant]
     Indication: DRUG USE FOR UNKNOWN INDICATION
     Dosage: 0.75 MG
     Route: 065
  3. BENZODIAZEPINES (NOS) [Concomitant]
     Indication: DRUG USE FOR UNKNOWN INDICATION
     Dosage: ^MASSIVE DOSES^ (NOS)
     Route: 065
  4. BROTIZOLAM [Suspect]
     Indication: MAJOR DEPRESSION
     Dosage: 0.5 MG
     Route: 065
  5. BROTIZOLAM [Suspect]
     Indication: DRUG ABUSE
     Dosage: 0.5 MG
     Route: 065
  6. AMOXAPINE [Suspect]
     Indication: MAJOR DEPRESSION
     Dosage: 75 MG
     Route: 065
  7. MYSLEE [Suspect]
     Indication: INSOMNIA
     Dosage: 10 MG
     Route: 048
  8. MYSLEE [Suspect]
     Indication: MAJOR DEPRESSION
     Dosage: 10 MG
     Route: 048
  9. MYSLEE [Suspect]
     Indication: DRUG ABUSE
     Dosage: 10 MG
     Route: 048
  10. MYSLEE [Suspect]
     Dosage: 20 MG
     Route: 048
  11. MYSLEE [Suspect]
     Dosage: 20 MG
     Route: 048
  12. MYSLEE [Suspect]
     Dosage: 20 MG
     Route: 048

REACTIONS (5)
  - ANOREXIA [None]
  - DRUG ABUSE [None]
  - GAIT DISTURBANCE [None]
  - NEUROLEPTIC MALIGNANT SYNDROME [None]
  - SOMNOLENCE [None]
